FAERS Safety Report 18895709 (Version 1)
Quarter: 2021Q1

REPORT INFORMATION
  Report Type: Spontaneous
  Country: FR (occurrence: FR)
  Receive Date: 20210215
  Receipt Date: 20210215
  Transmission Date: 20210420
  Serious: Yes (Death, Hospitalization)
  Sender: FDA-Public Use
  Company Number: FR-SA-2020SA342127

PATIENT
  Age: 77 Year
  Sex: Male
  Weight: 65 kg

DRUGS (3)
  1. HEPARIN SODIUM. [Suspect]
     Active Substance: HEPARIN SODIUM
     Indication: ANTICOAGULANT THERAPY
     Dosage: 20000 IU, QD
     Route: 065
     Dates: start: 20201102, end: 20201103
  2. DEXAMETHASONE SODIUM PHOSPHATE. [Concomitant]
     Active Substance: DEXAMETHASONE SODIUM PHOSPHATE
     Indication: PRODUCT USED FOR UNKNOWN INDICATION
     Dosage: UNK
     Route: 065
  3. LOVENOX [Suspect]
     Active Substance: ENOXAPARIN SODIUM
     Indication: ANTICOAGULANT THERAPY
     Dosage: 6000 IU, QD
     Route: 058
     Dates: start: 20201101, end: 20201102

REACTIONS (4)
  - Activated partial thromboplastin time prolonged [Not Recovered/Not Resolved]
  - Overdose [Recovered/Resolved]
  - Coagulopathy [Recovered/Resolved]
  - Multiple organ dysfunction syndrome [Fatal]

NARRATIVE: CASE EVENT DATE: 20201102
